FAERS Safety Report 12789283 (Version 2)
Quarter: 2016Q4

REPORT INFORMATION
  Report Type: Report from Study
  Country: UG (occurrence: UG)
  Receive Date: 20160928
  Receipt Date: 20161021
  Transmission Date: 20170207
  Serious: Yes (Other)
  Sender: FDA-Public Use
  Company Number: UG-GILEAD-2016-0221366

PATIENT
  Age: 27 Year
  Sex: Female
  Weight: 89.5 kg

DRUGS (57)
  1. EMTRICITABINE/TENOFOVIR DISOPROXIL FUMARATE [Suspect]
     Active Substance: EMTRICITABINE\TENOFOVIR DISOPROXIL FUMARATE
     Dosage: 1 DF, QD
     Route: 048
     Dates: start: 20140201, end: 20140224
  2. EMTRICITABINE/TENOFOVIR DISOPROXIL FUMARATE [Suspect]
     Active Substance: EMTRICITABINE\TENOFOVIR DISOPROXIL FUMARATE
     Dosage: 1 DF, QD
     Route: 048
     Dates: start: 20140626, end: 20141021
  3. EMTRICITABINE/TENOFOVIR DISOPROXIL FUMARATE [Suspect]
     Active Substance: EMTRICITABINE\TENOFOVIR DISOPROXIL FUMARATE
     Dosage: 1 DF, QD
     Route: 048
     Dates: start: 20150718, end: 20150924
  4. EMTRICITABINE/TENOFOVIR DISOPROXIL FUMARATE [Suspect]
     Active Substance: EMTRICITABINE\TENOFOVIR DISOPROXIL FUMARATE
     Dosage: 1 DF, QD
     Route: 048
     Dates: start: 20151226, end: 20160324
  5. ATAZANAVIR [Suspect]
     Active Substance: ATAZANAVIR
     Dosage: 1 DF, QD
     Route: 048
     Dates: start: 20140226, end: 20140522
  6. ATAZANAVIR [Suspect]
     Active Substance: ATAZANAVIR
     Dosage: 1 DF, QD
     Route: 048
     Dates: start: 20160616, end: 20160624
  7. ATAZANAVIR [Suspect]
     Active Substance: ATAZANAVIR
     Dosage: 1 DF, QD
     Route: 048
     Dates: start: 20160329
  8. RITONAVIR. [Suspect]
     Active Substance: RITONAVIR
     Dosage: 1 DF, QD
     Route: 048
     Dates: start: 20160329
  9. PLACEBO [Suspect]
     Active Substance: UNSPECIFIED INGREDIENT
     Indication: HIV INFECTION
     Dosage: 1 DF, QD
     Route: 048
     Dates: start: 20131210, end: 20140130
  10. COTRIMOXAZOLE [Concomitant]
     Active Substance: SULFAMETHOXAZOLE\TRIMETHOPRIM
     Indication: ANTIFUNGAL PROPHYLAXIS
     Dosage: UNK
     Route: 065
     Dates: start: 20131011
  11. EMTRICITABINE/TENOFOVIR DISOPROXIL FUMARATE [Suspect]
     Active Substance: EMTRICITABINE\TENOFOVIR DISOPROXIL FUMARATE
     Indication: HIV INFECTION
     Dosage: 1 DF, QD
     Route: 048
     Dates: start: 20131210, end: 20140130
  12. EMTRICITABINE/TENOFOVIR DISOPROXIL FUMARATE [Suspect]
     Active Substance: EMTRICITABINE\TENOFOVIR DISOPROXIL FUMARATE
     Dosage: 1 DF, QD
     Route: 048
     Dates: start: 20141023, end: 20141108
  13. ATAZANAVIR [Suspect]
     Active Substance: ATAZANAVIR
     Dosage: 1 DF, QD
     Route: 048
     Dates: start: 20140527, end: 20140614
  14. RITONAVIR. [Suspect]
     Active Substance: RITONAVIR
     Dosage: 1 DF, QD
     Route: 048
     Dates: start: 20140201, end: 20140224
  15. RITONAVIR. [Suspect]
     Active Substance: RITONAVIR
     Dosage: 1 DF, QD
     Route: 048
     Dates: start: 20140226, end: 20140522
  16. RITONAVIR. [Suspect]
     Active Substance: RITONAVIR
     Dosage: 1 UNK, QD
     Route: 048
     Dates: start: 20140626, end: 20141021
  17. PLACEBO [Suspect]
     Active Substance: UNSPECIFIED INGREDIENT
     Dosage: 1 DF, QD
     Route: 048
     Dates: start: 20140626, end: 20141021
  18. EMTRICITABINE/TENOFOVIR DISOPROXIL FUMARATE [Suspect]
     Active Substance: EMTRICITABINE\TENOFOVIR DISOPROXIL FUMARATE
     Dosage: 1 DF, QD
     Route: 048
     Dates: start: 20150926, end: 20151008
  19. EMTRICITABINE/TENOFOVIR DISOPROXIL FUMARATE [Suspect]
     Active Substance: EMTRICITABINE\TENOFOVIR DISOPROXIL FUMARATE
     Dosage: 1 DF, QD
     Route: 048
     Dates: start: 20151010, end: 20151224
  20. ATAZANAVIR [Suspect]
     Active Substance: ATAZANAVIR
     Dosage: 1 DF, QD
     Route: 048
     Dates: start: 20141023, end: 20141108
  21. RITONAVIR. [Suspect]
     Active Substance: RITONAVIR
     Dosage: 1 DF, QD
     Route: 048
     Dates: start: 20140616, end: 20140624
  22. RITONAVIR. [Suspect]
     Active Substance: RITONAVIR
     Dosage: 1 DF, QD
     Route: 048
     Dates: start: 20150926, end: 20151008
  23. PLACEBO [Suspect]
     Active Substance: UNSPECIFIED INGREDIENT
     Dosage: 1 DF, QD
     Route: 048
     Dates: start: 20141023, end: 20141108
  24. PLACEBO [Suspect]
     Active Substance: UNSPECIFIED INGREDIENT
     Dosage: 1 DF, QD
     Route: 048
     Dates: start: 20140201, end: 20140224
  25. EMTRICITABINE/TENOFOVIR DISOPROXIL FUMARATE [Suspect]
     Active Substance: EMTRICITABINE\TENOFOVIR DISOPROXIL FUMARATE
     Dosage: 1 DF, QD
     Route: 048
     Dates: start: 20140226, end: 20140524
  26. EMTRICITABINE/TENOFOVIR DISOPROXIL FUMARATE [Suspect]
     Active Substance: EMTRICITABINE\TENOFOVIR DISOPROXIL FUMARATE
     Dosage: 1 DF, QD
     Route: 048
     Dates: start: 20160329
  27. ATAZANAVIR [Suspect]
     Active Substance: ATAZANAVIR
     Dosage: 1 DF, QD
     Route: 048
     Dates: start: 20150718, end: 20150924
  28. ATAZANAVIR [Suspect]
     Active Substance: ATAZANAVIR
     Dosage: 1 DF, QD
     Route: 048
     Dates: start: 20151010, end: 20151224
  29. ATAZANAVIR [Suspect]
     Active Substance: ATAZANAVIR
     Dosage: 1 DF, QD
     Route: 048
     Dates: start: 20160622
  30. RITONAVIR. [Suspect]
     Active Substance: RITONAVIR
     Dosage: 1 DF, QD
     Route: 048
     Dates: start: 20141023, end: 20141108
  31. EMTRICITABINE/TENOFOVIR DISOPROXIL FUMARATE [Suspect]
     Active Substance: EMTRICITABINE\TENOFOVIR DISOPROXIL FUMARATE
     Dosage: 1 DF, QD
     Route: 048
     Dates: start: 20140527, end: 20140614
  32. EMTRICITABINE/TENOFOVIR DISOPROXIL FUMARATE [Suspect]
     Active Substance: EMTRICITABINE\TENOFOVIR DISOPROXIL FUMARATE
     Dosage: 1 DF, QD
     Route: 048
     Dates: start: 20141110, end: 20150202
  33. ATAZANAVIR [Suspect]
     Active Substance: ATAZANAVIR
     Dosage: 1 DF, QD
     Route: 048
     Dates: start: 20150203, end: 20150716
  34. RITONAVIR. [Suspect]
     Active Substance: RITONAVIR
     Indication: HIV INFECTION
     Dosage: 1 DF, QD
     Route: 048
     Dates: start: 20131210, end: 20140130
  35. RITONAVIR. [Suspect]
     Active Substance: RITONAVIR
     Dosage: 1 DF, QD
     Route: 048
     Dates: start: 20140527, end: 20140614
  36. RITONAVIR. [Suspect]
     Active Substance: RITONAVIR
     Dosage: 1 DF, QD
     Route: 048
     Dates: start: 20160622
  37. COUGH LINCTUS [Concomitant]
     Indication: COUGH
     Dosage: UNK
     Dates: start: 20160621
  38. EMTRICITABINE/TENOFOVIR DISOPROXIL FUMARATE [Suspect]
     Active Substance: EMTRICITABINE\TENOFOVIR DISOPROXIL FUMARATE
     Dosage: 1 DF, QD
     Route: 048
     Dates: start: 20160622
  39. ATAZANAVIR [Suspect]
     Active Substance: ATAZANAVIR
     Dosage: 1 DF, QD
     Route: 048
     Dates: start: 20140201, end: 20140224
  40. ATAZANAVIR [Suspect]
     Active Substance: ATAZANAVIR
     Dosage: 1 DF, QD
     Route: 048
     Dates: start: 20141110, end: 20150202
  41. RITONAVIR. [Suspect]
     Active Substance: RITONAVIR
     Dosage: 1 DF, QD
     Route: 048
     Dates: start: 20141110, end: 20150202
  42. PLACEBO [Suspect]
     Active Substance: UNSPECIFIED INGREDIENT
     Dosage: 1 DF, QD
     Route: 048
     Dates: start: 20140226, end: 20140522
  43. PLACEBO [Suspect]
     Active Substance: UNSPECIFIED INGREDIENT
     Dosage: 1 DF, QD
     Route: 048
     Dates: start: 20140527, end: 20140614
  44. PLACEBO [Suspect]
     Active Substance: UNSPECIFIED INGREDIENT
     Dosage: 1 DF, QD
     Route: 048
     Dates: start: 20140616, end: 20140624
  45. PLACEBO [Suspect]
     Active Substance: UNSPECIFIED INGREDIENT
     Dosage: 1 DF, QD
     Route: 048
     Dates: start: 20140226, end: 20160522
  46. EMTRICITABINE/TENOFOVIR DISOPROXIL FUMARATE [Suspect]
     Active Substance: EMTRICITABINE\TENOFOVIR DISOPROXIL FUMARATE
     Dosage: 1 DF, QD
     Route: 048
     Dates: start: 20150203, end: 20150716
  47. ATAZANAVIR [Suspect]
     Active Substance: ATAZANAVIR
     Indication: HIV INFECTION
     Dosage: 1 DF, QD
     Route: 048
     Dates: start: 20131210, end: 20140130
  48. ATAZANAVIR [Suspect]
     Active Substance: ATAZANAVIR
     Dosage: 1 DF, QD
     Route: 048
     Dates: start: 20140626, end: 20141021
  49. ATAZANAVIR [Suspect]
     Active Substance: ATAZANAVIR
     Dosage: 1 DF, QD
     Route: 048
     Dates: start: 20150926, end: 20151008
  50. ATAZANAVIR [Suspect]
     Active Substance: ATAZANAVIR
     Dosage: 1 DF, QD
     Route: 048
     Dates: start: 20151226, end: 20160324
  51. RITONAVIR. [Suspect]
     Active Substance: RITONAVIR
     Dosage: 1 DF, QD
     Route: 048
     Dates: start: 20150203, end: 20150716
  52. RITONAVIR. [Suspect]
     Active Substance: RITONAVIR
     Dosage: 1 DF, QD
     Route: 048
     Dates: start: 20150718, end: 20150924
  53. RITONAVIR. [Suspect]
     Active Substance: RITONAVIR
     Dosage: 1 DF, QD
     Route: 048
     Dates: start: 20151010, end: 20151224
  54. EMTRICITABINE/TENOFOVIR DISOPROXIL FUMARATE [Suspect]
     Active Substance: EMTRICITABINE\TENOFOVIR DISOPROXIL FUMARATE
     Dosage: 1 DF, QD
     Route: 048
     Dates: start: 20140616, end: 20140624
  55. RITONAVIR. [Suspect]
     Active Substance: RITONAVIR
     Dosage: 1 DF, QD
     Route: 048
     Dates: start: 20151226, end: 20160324
  56. PLACEBO [Suspect]
     Active Substance: UNSPECIFIED INGREDIENT
     Dosage: 1 DF, QD
     Route: 048
     Dates: start: 20141110, end: 20150202
  57. CANDIDERM                          /00212501/ [Concomitant]
     Indication: VULVOVAGINAL CANDIDIASIS
     Dosage: UNK
     Dates: start: 20160621

REACTIONS (2)
  - Maternal exposure during pregnancy [Recovered/Resolved]
  - Abortion spontaneous [Recovered/Resolved]

NARRATIVE: CASE EVENT DATE: 20160908
